FAERS Safety Report 7861284-0 (Version None)
Quarter: 2011Q4

REPORT INFORMATION
  Report Type: 
  Country: None (occurrence: None)
  Receive Date: 20111027
  Receipt Date: 20111019
  Transmission Date: 20120403
  Serious: Yes (Other)
  Sender: FDA-Public Use
  Company Number: ES-JNJFOC-20110905261

PATIENT
  Age: 23 Year
  Sex: Male

DRUGS (2)
  1. CETIRIZINE HCL [Suspect]
     Indication: PRODUCT USED FOR UNKNOWN INDICATION
     Dosage: DAILY DOSE TEXT: 10MG 2 MONTHS (APPROX. TOTAL DOSE 500MG)
     Route: 065
  2. CETIRIZINE HCL [Suspect]
     Route: 065

REACTIONS (1)
  - HEPATITIS [None]
